FAERS Safety Report 8376645-3 (Version None)
Quarter: 2012Q2

REPORT INFORMATION
  Report Type: 
  Country: None (occurrence: None)
  Receive Date: 20120522
  Receipt Date: 20120515
  Transmission Date: 20120825
  Serious: Yes (Hospitalization, Other)
  Sender: FDA-Public Use
  Company Number: US-AMGEN-USASP2012030569

PATIENT
  Age: 51 Year
  Sex: Male

DRUGS (1)
  1. ENBREL [Suspect]
     Indication: PSORIASIS
     Dosage: 50 MG, 2 TIMES/WK
     Dates: start: 20040101, end: 20100101

REACTIONS (18)
  - PSORIASIS [None]
  - WEIGHT INCREASED [None]
  - HEPATIC STEATOSIS [None]
  - OSTEONECROSIS [None]
  - THERAPEUTIC RESPONSE DECREASED [None]
  - BLOOD PRESSURE ABNORMAL [None]
  - HEAD INJURY [None]
  - LIMB INJURY [None]
  - ALCOHOLISM [None]
  - BLOOD CHOLESTEROL INCREASED [None]
  - ATRIAL FIBRILLATION [None]
  - BASAL CELL CARCINOMA [None]
  - BACK DISORDER [None]
  - CARDIAC DISORDER [None]
  - TENDONITIS [None]
  - CONTUSION [None]
  - NEUROPATHY PERIPHERAL [None]
  - PAIN IN EXTREMITY [None]
